FAERS Safety Report 9154814 (Version 1)
Quarter: 2013Q1

REPORT INFORMATION
  Report Type: Spontaneous
  Country: US (occurrence: US)
  Receive Date: 20130311
  Receipt Date: 20130311
  Transmission Date: 20140127
  Serious: Yes (Other)
  Sender: FDA-Public Use
  Company Number: US-ELI_LILLY_AND_COMPANY-US201303002190

PATIENT
  Sex: Male

DRUGS (2)
  1. EFFIENT [Suspect]
     Indication: STENT PLACEMENT
     Dosage: 10 MG, UNK
     Route: 048
  2. ASPIRIN [Concomitant]

REACTIONS (4)
  - Thrombosis in device [Unknown]
  - Oesophageal rupture [Unknown]
  - Oesophageal haemorrhage [Unknown]
  - Cough [Unknown]
